FAERS Safety Report 10049652 (Version 2)
Quarter: 2014Q2

REPORT INFORMATION
  Report Type: Report from Study
  Country: BD (occurrence: BD)
  Receive Date: 20140401
  Receipt Date: 20140402
  Transmission Date: 20141212
  Serious: Yes (Death, Hospitalization, Other)
  Sender: FDA-Public Use
  Company Number: PHHY2014BD038548

PATIENT
  Age: 79 Year
  Sex: Male

DRUGS (5)
  1. EXELON PATCH [Suspect]
     Indication: DEMENTIA
     Dosage: 9.5 MG, DAILY (9.5 MG/24 HOURS (PATCH 10 CM2 DAILY))
     Route: 062
     Dates: start: 201006, end: 20140115
  2. ANTIHYPERTENSIVE DRUGS [Concomitant]
     Indication: HYPERTENSION
     Dosage: UNK UKN, UNK
  3. INSULIN [Concomitant]
     Indication: DIABETES MELLITUS
     Dosage: UNK UKN, UNK
  4. ANTI-PARKINSON DRUGS [Concomitant]
     Indication: PARKINSONISM
     Dosage: UNK UKN, UNK
  5. CALCIUM + VITAMIN D [Concomitant]
     Dosage: UNK UKN, UNK

REACTIONS (3)
  - Sepsis [Fatal]
  - Fracture [Unknown]
  - Urinary tract infection [Unknown]
